FAERS Safety Report 8555645-4 (Version None)
Quarter: 2012Q3

REPORT INFORMATION
  Report Type: 
  Country: None (occurrence: None)
  Receive Date: 20120731
  Receipt Date: 20120716
  Transmission Date: 20120928
  Serious: No
  Sender: FDA-Public Use
  Company Number: US-009507513-1207USA006010

PATIENT

DRUGS (2)
  1. AZASITE [Suspect]
     Indication: BLEPHARITIS
     Dosage: 2 DF, BID
     Route: 047
     Dates: start: 20120629
  2. AZASITE [Suspect]
     Indication: CONJUNCTIVITIS

REACTIONS (4)
  - PRODUCT PACKAGING QUANTITY ISSUE [None]
  - DRUG DOSE OMISSION [None]
  - DRUG INEFFECTIVE [None]
  - INAPPROPRIATE SCHEDULE OF DRUG ADMINISTRATION [None]
